FAERS Safety Report 4517491-8 (Version None)
Quarter: 2004Q4

REPORT INFORMATION
  Report Type: 
  Country: None (occurrence: None)
  Receive Date: 20041022
  Receipt Date: 20040916
  Transmission Date: 20050328
  Serious: Yes (Other)
  Sender: FDA-Public Use
  Company Number: 2004068281

PATIENT
  Age: 20 Year
  Sex: Male

DRUGS (3)
  1. RELPAX [Suspect]
     Indication: HEADACHE
     Dosage: ORAL
     Route: 048
     Dates: start: 20040915
  2. SALBUTAMOL (SALBUTAMOL) [Concomitant]
  3. CROMOGLICATE SODIUM (CROMOGLICATE SODIUM) [Concomitant]

REACTIONS (2)
  - BURNING SENSATION [None]
  - THROAT TIGHTNESS [None]
